FAERS Safety Report 10676369 (Version 2)
Quarter: 2015Q1

REPORT INFORMATION
  Report Type: Spontaneous
  Country: IL (occurrence: IL)
  Receive Date: 20141226
  Receipt Date: 20150108
  Transmission Date: 20150720
  Serious: Yes (Death, Hospitalization)
  Sender: FDA-Public Use
  Company Number: IL-CIPLA LTD.-2014IL02905

PATIENT

DRUGS (3)
  1. CARBOPLATIN. [Suspect]
     Active Substance: CARBOPLATIN
     Indication: NEUROENDOCRINE CARCINOMA OF THE SKIN
     Dosage: (AUC) 5 ON DAY 1
  2. ETOPOSIDE. [Suspect]
     Active Substance: ETOPOSIDE
     Indication: NEUROENDOCRINE CARCINOMA OF THE SKIN
     Dosage: 75 MG/M2 ON DAYS 1-3
  3. RADIOTHERAPY [Concomitant]
     Active Substance: RADIATION THERAPY
     Indication: NEUROENDOCRINE CARCINOMA OF THE SKIN

REACTIONS (5)
  - Neuroendocrine carcinoma of the skin [Unknown]
  - Tumour lysis syndrome [Unknown]
  - Pancytopenia [Unknown]
  - Acute kidney injury [Unknown]
  - Death [Fatal]
